FAERS Safety Report 19255752 (Version 1)
Quarter: 2021Q2

REPORT INFORMATION
  Report Type: Other
  Country: BE (occurrence: BE)
  Receive Date: 20210514
  Receipt Date: 20210514
  Transmission Date: 20210717
  Serious: Yes (Other)
  Sender: FDA-Public Use
  Company Number: BE-ROCHE-2824132

PATIENT

DRUGS (3)
  1. TACROLIMUS. [Suspect]
     Active Substance: TACROLIMUS
     Indication: IMMUNOSUPPRESSION
     Route: 065
  2. MYCOPHENOLATE MOFETIL. [Suspect]
     Active Substance: MYCOPHENOLATE MOFETIL
     Indication: IMMUNOSUPPRESSION
     Route: 065
  3. METHYLPREDNISOLONE. [Suspect]
     Active Substance: METHYLPREDNISOLONE
     Indication: IMMUNOSUPPRESSION
     Route: 065

REACTIONS (8)
  - Hepatocellular carcinoma [Unknown]
  - Epstein-Barr virus infection [Unknown]
  - Pneumonia [Unknown]
  - Human polyomavirus infection [Unknown]
  - Cytomegalovirus infection [Unknown]
  - Gastroenteritis [Unknown]
  - Hepatic cirrhosis [Unknown]
  - Urinary tract infection [Unknown]
